FAERS Safety Report 20490168 (Version 2)
Quarter: 2022Q1

REPORT INFORMATION
  Report Type: Spontaneous
  Country: CN (occurrence: CN)
  Receive Date: 20220218
  Receipt Date: 20220222
  Transmission Date: 20220423
  Serious: Yes (Hospitalization, Other)
  Sender: FDA-Public Use
  Company Number: CN-009507513-2202CHN003998

PATIENT
  Age: 58 Year
  Sex: Male
  Weight: 70 kg

DRUGS (9)
  1. CILASTATIN SODIUM\IMIPENEM [Suspect]
     Active Substance: CILASTATIN SODIUM\IMIPENEM
     Indication: Pneumonia
     Dosage: 1 G, ONCE A DAY (QD)
     Route: 041
     Dates: start: 20220122, end: 20220122
  2. CILASTATIN SODIUM\IMIPENEM [Suspect]
     Active Substance: CILASTATIN SODIUM\IMIPENEM
     Dosage: 0.75 G, ONCE A DAY (QD)
     Route: 041
     Dates: start: 20220122, end: 20220122
  3. CILASTATIN SODIUM\IMIPENEM [Suspect]
     Active Substance: CILASTATIN SODIUM\IMIPENEM
     Dosage: 0.75 G, THREE TIMES A DAY (TID) (ALSO REPORTED AS Q8H)
     Route: 041
     Dates: start: 20220123, end: 20220124
  4. MOXIFLOXACIN HYDROCHLORIDE [Suspect]
     Active Substance: MOXIFLOXACIN HYDROCHLORIDE
     Indication: Mycoplasma infection
     Dosage: 0.4 G, ONCE A DAY (QD)
     Dates: start: 20220123, end: 20220124
  5. TERBUTALINE SULFATE [Suspect]
     Active Substance: TERBUTALINE SULFATE
     Indication: Pneumonia
     Dosage: 2 ML, THREE TIMES A DAY (TID)
     Dates: start: 20211223, end: 20220124
  6. DICLOFENAC SODIUM [Concomitant]
     Active Substance: DICLOFENAC SODIUM
     Indication: Headache
     Dosage: 75 MG, ONCE A DAY (QD)
     Route: 048
     Dates: start: 20220124, end: 20220124
  7. BUDESONIDE [Concomitant]
     Active Substance: BUDESONIDE
     Indication: Pneumonia
     Dosage: 2 ML, THREE TIMES A DAY (TID)
     Dates: start: 20220123, end: 20220125
  8. SODIUM CHLORIDE [Concomitant]
     Active Substance: SODIUM CHLORIDE
     Indication: Medication dilution
     Dosage: 100 ML, THREE TIMES A DAY (TID)
     Route: 041
     Dates: start: 20220122, end: 20220124
  9. SODIUM CHLORIDE [Concomitant]
     Active Substance: SODIUM CHLORIDE
     Indication: Medication dilution
     Dosage: 2 ML, THREE TIMES A DAY (TID)
     Dates: start: 20220123, end: 20220124

REACTIONS (5)
  - Epilepsy [Recovering/Resolving]
  - Tremor [Recovering/Resolving]
  - Headache [Recovering/Resolving]
  - Inappropriate schedule of product administration [Unknown]
  - Inappropriate schedule of product administration [Unknown]

NARRATIVE: CASE EVENT DATE: 20220122
